FAERS Safety Report 5085786-8 (Version None)
Quarter: 2006Q3

REPORT INFORMATION
  Report Type: 
  Country: None (occurrence: None)
  Receive Date: 20060816
  Receipt Date: 20060802
  Transmission Date: 20061208
  Serious: Yes (Hospitalization)
  Sender: FDA-Public Use
  Company Number: EM2006-0438

PATIENT
  Age: 30 Year
  Sex: Male

DRUGS (3)
  1. TOBI; CHIRON CORPORATION (TOBI; CHIRON CORPORATION) [Suspect]
     Indication: PSEUDOMONAS INFECTION
     Dosage: SEE IMAGE, INHALATION
     Route: 055
     Dates: start: 20060621, end: 20060705
  2. TOBI; CHIRON CORPORATION (TOBI; CHIRON CORPORATION) [Suspect]
     Indication: PSEUDOMONAS INFECTION
     Dosage: SEE IMAGE, INHALATION
     Route: 055
     Dates: start: 20060712, end: 20060726
  3. MYOLASTAN (TETRAZEPAM) [Suspect]
     Indication: CHEST PAIN
     Dosage: ONCE
     Dates: start: 20060719, end: 20060725

REACTIONS (4)
  - DYSPNOEA [None]
  - FATIGUE [None]
  - INCREASED BRONCHIAL SECRETION [None]
  - INFLAMMATION [None]
